FAERS Safety Report 17340196 (Version 8)
Quarter: 2021Q1

REPORT INFORMATION
  Report Type: Report from Study
  Country: CA (occurrence: CA)
  Receive Date: 20200129
  Receipt Date: 20210218
  Transmission Date: 20210419
  Serious: Yes (Hospitalization)
  Sender: FDA-Public Use
  Company Number: CA-BRISTOL-MYERS SQUIBB COMPANY-BMS-2020-004591

PATIENT
  Sex: Female

DRUGS (1)
  1. ABATACEPT [Suspect]
     Active Substance: ABATACEPT
     Indication: RHEUMATOID ARTHRITIS
     Dosage: 1000 MILLIGRAM, QMO
     Route: 042
     Dates: start: 20090818

REACTIONS (7)
  - Depression [Unknown]
  - Pain [Recovering/Resolving]
  - Treatment noncompliance [Not Recovered/Not Resolved]
  - Peripheral swelling [Unknown]
  - Inflammation [Unknown]
  - Affective disorder [Unknown]
  - Gait disturbance [Unknown]
